FAERS Safety Report 8580983-9 (Version None)
Quarter: 2012Q3

REPORT INFORMATION
  Report Type: 
  Country: None (occurrence: None)
  Receive Date: 20120809
  Receipt Date: 20120806
  Transmission Date: 20120928
  Serious: No
  Sender: FDA-Public Use
  Company Number: US-PFIZER INC-2012192036

PATIENT
  Sex: Female

DRUGS (5)
  1. ZYRTEC [Suspect]
     Indication: ANGIOEDEMA
     Dosage: UNK
  2. RANITIDINE [Suspect]
     Indication: ANGIOEDEMA
     Dosage: UNK
  3. EFFEXOR [Suspect]
     Indication: ANGIOEDEMA
     Dosage: UNK
  4. PREDNISONE TAB [Suspect]
     Indication: ANGIOEDEMA
     Dosage: UNK
     Dates: start: 20120101
  5. FEXOFENADINE HCL [Suspect]
     Indication: ANGIOEDEMA
     Dosage: 180 MG, UNK

REACTIONS (2)
  - DRUG INEFFECTIVE FOR UNAPPROVED INDICATION [None]
  - OFF LABEL USE [None]
